FAERS Safety Report 16592369 (Version 1)
Quarter: 2019Q3

REPORT INFORMATION
  Report Type: Spontaneous
  Country: BR (occurrence: BR)
  Receive Date: 20190718
  Receipt Date: 20190718
  Transmission Date: 20191004
  Serious: Yes (Other)
  Sender: FDA-Public Use
  Company Number: BR-DSJP-DSU-2019-127220

PATIENT

DRUGS (2)
  1. OLMETEC HCT [Suspect]
     Active Substance: HYDROCHLOROTHIAZIDE\OLMESARTAN MEDOXOMIL
     Indication: HYPERTENSION
     Dosage: 1 DF, QD
     Route: 065
  2. MANIVASC [Concomitant]
     Active Substance: MANIDIPINE HYDROCHLORIDE
     Indication: HYPERTENSION
     Dosage: 1 TABLET, QD
     Route: 065

REACTIONS (5)
  - Deafness [Unknown]
  - Hypoaesthesia [Unknown]
  - Blood potassium increased [Unknown]
  - Intentional product misuse [Unknown]
  - Feeling abnormal [Unknown]
